FAERS Safety Report 20371767 (Version 25)
Quarter: 2023Q2

REPORT INFORMATION
  Report Type: Spontaneous
  Country: CA (occurrence: CA)
  Receive Date: 20220124
  Receipt Date: 20230522
  Transmission Date: 20230722
  Serious: Yes (Other)
  Sender: FDA-Public Use
  Company Number: CA-PFIZER INC-202100975696

PATIENT
  Age: 45 Year
  Sex: Male
  Weight: 80 kg

DRUGS (16)
  1. ZIRABEV [Suspect]
     Active Substance: BEVACIZUMAB-BVZR
     Indication: Glioblastoma
     Dosage: 1200 MG, EVERY 3 WEEKS
     Route: 042
     Dates: start: 20210813, end: 20210813
  2. ZIRABEV [Suspect]
     Active Substance: BEVACIZUMAB-BVZR
     Indication: Brain cancer metastatic
     Dosage: 1200 MG, EVERY 3 WEEKS
     Route: 042
     Dates: start: 20210813, end: 20210813
  3. ZIRABEV [Suspect]
     Active Substance: BEVACIZUMAB-BVZR
     Dosage: 1200 MG, EVERY 3 WEEKS
     Route: 042
     Dates: start: 20210902, end: 20210902
  4. ZIRABEV [Suspect]
     Active Substance: BEVACIZUMAB-BVZR
     Dosage: 1200 MG, EVERY 3 WEEKS
     Route: 042
     Dates: start: 20211015, end: 20211015
  5. ZIRABEV [Suspect]
     Active Substance: BEVACIZUMAB-BVZR
     Dosage: 1200 MG, EVERY 3 WEEKS
     Route: 042
     Dates: start: 20211104, end: 20211104
  6. ZIRABEV [Suspect]
     Active Substance: BEVACIZUMAB-BVZR
     Dosage: 1200 MG, EVERY 3 WEEKS
     Route: 042
     Dates: start: 20211126
  7. ZIRABEV [Suspect]
     Active Substance: BEVACIZUMAB-BVZR
     Dosage: 1200 MG, EVERY 3 WEEKS
     Route: 042
     Dates: start: 20220614
  8. ZIRABEV [Suspect]
     Active Substance: BEVACIZUMAB-BVZR
     Dosage: 1200 MG, EVERY 3 WEEKS
     Route: 042
     Dates: start: 20220729
  9. ZIRABEV [Suspect]
     Active Substance: BEVACIZUMAB-BVZR
     Dosage: 1200 MG, EVERY 3 WEEKS
     Route: 042
     Dates: start: 20220906
  10. ZIRABEV [Suspect]
     Active Substance: BEVACIZUMAB-BVZR
     Dosage: 1200 MG, EVERY 3 WEEKS
     Route: 042
     Dates: start: 20221129
  11. ZIRABEV [Suspect]
     Active Substance: BEVACIZUMAB-BVZR
     Dosage: 750 MG, EVERY 2 WEEKS FOR 5 REPEATED
     Dates: start: 20230209
  12. ZIRABEV [Suspect]
     Active Substance: BEVACIZUMAB-BVZR
     Dosage: 1200 MG, EVERY 3 WEEKS
     Dates: start: 20230223
  13. ZIRABEV [Suspect]
     Active Substance: BEVACIZUMAB-BVZR
     Dosage: 1200 MG
     Dates: start: 20230316
  14. DEXAMETHASONE [Concomitant]
     Active Substance: DEXAMETHASONE
     Dosage: UNK
  15. DEXAMETHASONE [Concomitant]
     Active Substance: DEXAMETHASONE
     Dosage: UNK
     Dates: start: 20210830
  16. LOMUSTINE [Concomitant]
     Active Substance: LOMUSTINE
     Dosage: UNK

REACTIONS (20)
  - Seizure [Unknown]
  - Platelet count decreased [Recovering/Resolving]
  - Hemiparesis [Unknown]
  - Infusion site extravasation [Unknown]
  - Heart rate decreased [Unknown]
  - Nasopharyngitis [Unknown]
  - Malaise [Unknown]
  - Weight decreased [Not Recovered/Not Resolved]
  - Illness [Recovered/Resolved]
  - Fatigue [Unknown]
  - Somnolence [Unknown]
  - Discomfort [Unknown]
  - Renal disorder [Unknown]
  - Mobility decreased [Unknown]
  - Blood pressure fluctuation [Unknown]
  - Gait disturbance [Unknown]
  - Off label use [Unknown]
  - Off label use [Unknown]
  - Inappropriate schedule of product administration [Unknown]
  - Product dose omission issue [Unknown]

NARRATIVE: CASE EVENT DATE: 20210902
